FAERS Safety Report 6303272-1 (Version None)
Quarter: 2009Q3

REPORT INFORMATION
  Report Type: 
  Country: None (occurrence: None)
  Receive Date: 20090810
  Receipt Date: 20090427
  Transmission Date: 20100115
  Serious: No
  Sender: FDA-Public Use
  Company Number: A0780766A

PATIENT
  Sex: Female
  Weight: 50 kg

DRUGS (4)
  1. PAXIL [Suspect]
     Indication: DEPRESSION
     Route: 048
  2. WELLBUTRIN SR [Suspect]
     Indication: DEPRESSION
     Dosage: 100MG TWICE PER DAY
     Route: 048
  3. WELLBUTRIN SR [Suspect]
     Dosage: 150MG PER DAY
     Route: 048
  4. KLONOPIN [Concomitant]

REACTIONS (6)
  - DRUG INEFFECTIVE [None]
  - DYSGEUSIA [None]
  - ILL-DEFINED DISORDER [None]
  - INSOMNIA [None]
  - PARAESTHESIA [None]
  - SEXUAL DYSFUNCTION [None]
